FAERS Safety Report 10758727 (Version 1)
Quarter: 2015Q1

REPORT INFORMATION
  Report Type: Report from Study
  Country: US (occurrence: US)
  Receive Date: 20150203
  Receipt Date: 20150203
  Transmission Date: 20150721
  Serious: Yes (Hospitalization)
  Sender: FDA-Public Use
  Company Number: US-TEVA-527303USA

PATIENT
  Age: 57 Year
  Sex: Female

DRUGS (7)
  1. ATIVAN [Concomitant]
     Active Substance: LORAZEPAM
  2. NAVANE [Concomitant]
     Active Substance: THIOTHIXENE
  3. CLOZAPINE. [Suspect]
     Active Substance: CLOZAPINE
     Indication: SCHIZOAFFECTIVE DISORDER
     Route: 048
  4. ZYPREXA [Concomitant]
     Active Substance: OLANZAPINE
  5. LITHIUM [Concomitant]
     Active Substance: LITHIUM CARBONATE
  6. ABILIFY [Concomitant]
     Active Substance: ARIPIPRAZOLE
  7. DEPAKOTE [Concomitant]
     Active Substance: DIVALPROEX SODIUM

REACTIONS (1)
  - Gait disturbance [Recovered/Resolved]

NARRATIVE: CASE EVENT DATE: 20141129
